FAERS Safety Report 8269670 (Version 3)
Quarter: 2013Q1

REPORT INFORMATION
  Report Type: Report from Study
  Country: JP (occurrence: JP)
  Receive Date: 20111130
  Receipt Date: 20130325
  Transmission Date: 20140127
  Serious: Yes (Hospitalization, Other)
  Sender: FDA-Public Use
  Company Number: JP-ROCHE-1017412

PATIENT
  Age: 62 Year
  Sex: Female
  Weight: 46.6 kg

DRUGS (11)
  1. PEG-INTERFERON ALFA 2A [Suspect]
     Indication: CHRONIC HEPATITIS C
     Route: 058
     Dates: start: 20110825, end: 20110916
  2. RIBAVIRIN [Suspect]
     Indication: CHRONIC HEPATITIS C
     Route: 048
     Dates: start: 20110825, end: 20110920
  3. BLINDED BI 201335 [Suspect]
     Indication: CHRONIC HEPATITIS C
     Dosage: 4 CAPS DAILY ON 1ST DAY THEN 2 CAPS DAILY FROM 2ND DAY
     Route: 048
     Dates: start: 20110825, end: 20110920
  4. TOWAMIN [Concomitant]
     Indication: HYPERTENSION
     Dosage: DOSE:50
     Route: 048
  5. CRESTOR [Concomitant]
     Indication: HYPERLIPIDAEMIA
     Route: 065
     Dates: end: 20110920
  6. COLONORM [Concomitant]
     Route: 048
  7. GASTER D [Concomitant]
     Route: 065
     Dates: start: 20110825, end: 20110920
  8. SELBEX [Concomitant]
     Route: 065
     Dates: start: 20110825, end: 20110920
  9. VOLTAREN SR [Concomitant]
     Route: 048
     Dates: start: 20110825, end: 20110920
  10. COCARL [Concomitant]
     Indication: PROPHYLAXIS
     Route: 048
     Dates: start: 20110825, end: 20110920
  11. HYTHIOL [Concomitant]

REACTIONS (13)
  - Drug reaction with eosinophilia and systemic symptoms [Unknown]
  - Drug eruption [Recovered/Resolved]
  - Vomiting [Recovered/Resolved]
  - Malaise [Recovered/Resolved]
  - Hyperbilirubinaemia [Recovered/Resolved]
  - Thrombocytopenia [Recovered/Resolved]
  - Episcleritis [Recovered/Resolved]
  - Nausea [Recovered/Resolved]
  - Decreased appetite [Recovered/Resolved]
  - Arthralgia [Recovered/Resolved]
  - Pyrexia [Recovered/Resolved]
  - Haemorrhage subcutaneous [Recovered/Resolved]
  - Leukopenia [Recovered/Resolved]
